FAERS Safety Report 5528476-7 (Version None)
Quarter: 2007Q4

REPORT INFORMATION
  Report Type: 
  Country: None (occurrence: None)
  Receive Date: 20071128
  Receipt Date: 20071115
  Transmission Date: 20080405
  Serious: No
  Sender: FDA-Public Use
  Company Number: US-BOEHRINGER INGELHEIM PHARMACEUTICALS, INC.-2007-BP-24672BP

PATIENT
  Sex: Female

DRUGS (5)
  1. SPIRIVA [Suspect]
     Indication: CHRONIC OBSTRUCTIVE PULMONARY DISEASE
     Route: 055
     Dates: start: 20040101
  2. SYNTHROID [Concomitant]
  3. BP MED [Concomitant]
  4. PULMICORT [Concomitant]
  5. MAXAIR [Concomitant]

REACTIONS (2)
  - EYE PAIN [None]
  - HEADACHE [None]
